FAERS Safety Report 19379676 (Version 1)
Quarter: 2021Q2

REPORT INFORMATION
  Report Type: Spontaneous
  Country: US (occurrence: US)
  Receive Date: 20210607
  Receipt Date: 20210607
  Transmission Date: 20210717
  Serious: No
  Sender: FDA-Public Use
  Company Number: US-TEVA-2021-US-1901142

PATIENT
  Sex: Male

DRUGS (1)
  1. COPAXONE [Suspect]
     Active Substance: GLATIRAMER ACETATE
     Dosage: FORM STRENGTH AND DOSE: UNKNOWN. FORM OF ADMIN: AUTOJECT
     Route: 065

REACTIONS (3)
  - Injection site discomfort [Unknown]
  - Incorrect dose administered by device [Unknown]
  - Device issue [Unknown]
